FAERS Safety Report 5267399-8 (Version None)
Quarter: 2007Q1

REPORT INFORMATION
  Report Type: 
  Country: None (occurrence: None)
  Receive Date: 20070316
  Receipt Date: 20070307
  Transmission Date: 20070707
  Serious: Yes (Hospitalization)
  Sender: FDA-Public Use
  Company Number: US-ELI_LILLY_AND_COMPANY-US200611002189

PATIENT
  Sex: Male

DRUGS (1)
  1. HUMULIN 70/30 [Suspect]
     Indication: DIABETES MELLITUS
     Dates: start: 19970101

REACTIONS (6)
  - AMPUTATION [None]
  - HYPERSENSITIVITY [None]
  - INFECTION [None]
  - INJECTION SITE ERYTHEMA [None]
  - LATEX ALLERGY [None]
  - VISUAL ACUITY REDUCED [None]
